FAERS Safety Report 5781464-8 (Version None)
Quarter: 2008Q2

REPORT INFORMATION
  Report Type: 
  Country: None (occurrence: None)
  Receive Date: 20080623
  Receipt Date: 20070709
  Transmission Date: 20081010
  Serious: No
  Sender: FDA-Public Use
  Company Number: US-ASTRAZENECA-2007UW16093

PATIENT
  Age: 74 Year
  Sex: Female
  Weight: 59 kg

DRUGS (5)
  1. ENTOCORT EC [Suspect]
     Indication: DIARRHOEA
     Route: 048
  2. ENTOCORT EC [Suspect]
     Indication: COLITIS MICROSCOPIC
     Route: 048
  3. ENTOCORT EC [Suspect]
     Route: 048
     Dates: start: 20070706
  4. ENTOCORT EC [Suspect]
     Route: 048
     Dates: start: 20070706
  5. HORMONE REPLACEMENT THERAPY [Concomitant]

REACTIONS (4)
  - HEADACHE [None]
  - INCREASED APPETITE [None]
  - MEMORY IMPAIRMENT [None]
  - MOOD SWINGS [None]
